FAERS Safety Report 18494803 (Version 19)
Quarter: 2025Q3

REPORT INFORMATION
  Report Type: Report from Study
  Country: US (occurrence: US)
  Receive Date: 20201112
  Receipt Date: 20250926
  Transmission Date: 20251020
  Serious: Yes (Other)
  Sender: TAKEDA
  Company Number: US-TAKEDA-US202033564

PATIENT
  Age: 39 Year
  Sex: Female
  Weight: 68 kg

DRUGS (38)
  1. ICATIBANT [Suspect]
     Active Substance: ICATIBANT ACETATE
     Indication: Immune system disorder
     Dosage: 30 MILLIGRAM, Q2WEEKS
     Dates: start: 20200911
  2. ICATIBANT [Suspect]
     Active Substance: ICATIBANT ACETATE
  3. CINRYZE [Suspect]
     Active Substance: HUMAN C1-ESTERASE INHIBITOR
     Indication: Immune system disorder
     Dosage: 1000 INTERNATIONAL UNIT, 2/WEEK
  4. CINRYZE [Suspect]
     Active Substance: HUMAN C1-ESTERASE INHIBITOR
     Dosage: 1000 INTERNATIONAL UNIT, 1/WEEK
  5. CINRYZE [Suspect]
     Active Substance: HUMAN C1-ESTERASE INHIBITOR
  6. ASCENIV [Suspect]
     Active Substance: HUMAN IMMUNOGLOBULIN G
     Indication: Product used for unknown indication
  7. EPINEPHRINE [Concomitant]
     Active Substance: EPINEPHRINE
  8. STERILE WATER [Concomitant]
     Active Substance: WATER
  9. RUCONEST [Concomitant]
     Active Substance: CONESTAT ALFA
  10. VALACYCLOVIR [Concomitant]
     Active Substance: VALACYCLOVIR HYDROCHLORIDE
  11. MELOXICAM [Concomitant]
     Active Substance: MELOXICAM
  12. ITRACONAZOLE [Concomitant]
     Active Substance: ITRACONAZOLE
  13. GAMMAGARD [Concomitant]
     Active Substance: HUMAN IMMUNOGLOBULIN G
  14. HEPARIN [Concomitant]
     Active Substance: HEPARIN SODIUM
  15. SODIUM CHLORIDE [Concomitant]
     Active Substance: SODIUM CHLORIDE
  16. SELENIUM [Concomitant]
     Active Substance: SELENIUM
  17. MAGNESIUM OXIDE [Concomitant]
     Active Substance: MAGNESIUM OXIDE
  18. VITAMIN D3 [Concomitant]
     Active Substance: CHOLECALCIFEROL
  19. MAXALT [Concomitant]
     Active Substance: RIZATRIPTAN BENZOATE
  20. ACETAZOLAMIDE [Concomitant]
     Active Substance: ACETAZOLAMIDE
  21. ZINC [Concomitant]
     Active Substance: ZINC
  22. HYDROXYZINE HYDROCHLORIDE [Concomitant]
     Active Substance: HYDROXYZINE HYDROCHLORIDE
  23. ACETAMINOPHEN\PHENIRAMINE MALEATE\PHENYLEPHRINE HYDROCHLORIDE [Concomitant]
     Active Substance: ACETAMINOPHEN\PHENIRAMINE MALEATE\PHENYLEPHRINE HYDROCHLORIDE
  24. VITAMIN B COMPLEX [Concomitant]
     Active Substance: CYANOCOBALAMIN\DEXPANTHENOL\NIACINAMIDE\PYRIDOXINE HYDROCHLORIDE\RIBOFLAVIN 5^-PHOSPHATE SODIUM\THIA
  25. LOSARTAN POTASSIUM [Concomitant]
     Active Substance: LOSARTAN POTASSIUM
  26. LYRICA [Concomitant]
     Active Substance: PREGABALIN
  27. PRIVIGEN [Concomitant]
     Active Substance: HUMAN IMMUNOGLOBULIN G
  28. HAEGARDA [Concomitant]
     Active Substance: HUMAN C1-ESTERASE INHIBITOR
  29. EMGALITY [Concomitant]
     Active Substance: GALCANEZUMAB-GNLM
  30. B COMPLEX PLUS VITAMIN C [Concomitant]
  31. LYSINE [Concomitant]
     Active Substance: LYSINE
  32. HYDROXYZINE [Concomitant]
     Active Substance: HYDROXYZINE HYDROCHLORIDE
  33. VITAMIN C [Concomitant]
     Active Substance: ASCORBIC ACID
  34. LOSARTAN [Concomitant]
     Active Substance: LOSARTAN
  35. POTASSIUM [Concomitant]
     Active Substance: POTASSIUM
  36. BENZONATATE [Concomitant]
     Active Substance: BENZONATATE
  37. STERILE WATER [Concomitant]
     Active Substance: WATER
  38. PROPRANOLOL HYDROCHLORIDE [Concomitant]
     Active Substance: PROPRANOLOL HYDROCHLORIDE

REACTIONS (35)
  - Mast cell activation syndrome [Unknown]
  - CSF test abnormal [Unknown]
  - White blood cell count decreased [Unknown]
  - Herpes zoster [Unknown]
  - Bacterial infection [Unknown]
  - Ehlers-Danlos syndrome [Unknown]
  - Fungal infection [Unknown]
  - Device issue [Unknown]
  - Product use issue [Unknown]
  - Mastitis [Unknown]
  - Skin infection [Unknown]
  - Product dose omission issue [Unknown]
  - Fall [Unknown]
  - Injury [Unknown]
  - Migraine [Unknown]
  - Conjunctivitis [Unknown]
  - Infection [Unknown]
  - Inappropriate schedule of product administration [Unknown]
  - Sinusitis [Unknown]
  - Abdominal pain [Unknown]
  - Hereditary angioedema [Unknown]
  - Injection site pain [Unknown]
  - Headache [Unknown]
  - Injection site haemorrhage [Unknown]
  - Injection site bruising [Unknown]
  - Urticaria [Unknown]
  - Lip swelling [Unknown]
  - Swollen tongue [Unknown]
  - Dysuria [Unknown]
  - Flank pain [Unknown]
  - Renal pain [Unknown]
  - Protein total increased [Unknown]
  - Protein urine present [Unknown]
  - Erythema [Unknown]
  - Burning sensation [Unknown]
